FAERS Safety Report 18943097 (Version 1)
Quarter: 2021Q1

REPORT INFORMATION
  Report Type: Spontaneous
  Country: FR (occurrence: FR)
  Receive Date: 20210226
  Receipt Date: 20210226
  Transmission Date: 20210420
  Serious: Yes (Hospitalization, Other)
  Sender: FDA-Public Use
  Company Number: FR-AUROBINDO-AUR-APL-2021-007001

PATIENT
  Age: 81 Year
  Sex: Male

DRUGS (9)
  1. 5?FU [Suspect]
     Active Substance: FLUOROURACIL
     Dosage: 400 MILLIGRAM/SQ. METER (BOLUS)
     Route: 065
  2. LEUCOVORINE SANDOZ [Suspect]
     Active Substance: LEUCOVORIN CALCIUM
     Indication: ADENOCARCINOMA PANCREAS
     Dosage: 400 MILLIGRAM/SQ. METER
     Route: 042
  3. SPASFON [Concomitant]
     Indication: PAIN
     Dosage: 12 MICROGRAM
     Route: 065
  4. DUROGESIC [Concomitant]
     Active Substance: FENTANYL
     Indication: PAIN
     Dosage: 12 MICROGRAM
     Route: 065
  5. ACUPAN [Concomitant]
     Active Substance: NEFOPAM HYDROCHLORIDE
     Indication: PAIN
     Dosage: 12 MICROGRAM
     Route: 065
  6. IRINOTECAN [Suspect]
     Active Substance: IRINOTECAN
     Indication: PRODUCT USED FOR UNKNOWN INDICATION
     Dosage: 136 MILLIGRAM/SQ. METER
     Route: 042
  7. 5?FU [Suspect]
     Active Substance: FLUOROURACIL
     Indication: PRODUCT USED FOR UNKNOWN INDICATION
     Dosage: 1200 MILLIGRAM/SQ. METER
     Route: 065
     Dates: end: 20190705
  8. INIPOMP [Concomitant]
     Active Substance: PANTOPRAZOLE SODIUM
     Indication: EPIGASTRIC DISCOMFORT
     Dosage: UNK
     Route: 048
  9. PARACETAMOL [Concomitant]
     Active Substance: ACETAMINOPHEN
     Indication: PAIN
     Dosage: 12 MICROGRAM
     Route: 065

REACTIONS (24)
  - Aspartate aminotransferase increased [Unknown]
  - Alanine aminotransferase increased [Unknown]
  - Bilirubin conjugated increased [Unknown]
  - Blood creatinine decreased [Unknown]
  - Nausea [Unknown]
  - General physical health deterioration [Recovered/Resolved with Sequelae]
  - Gamma-glutamyltransferase increased [Unknown]
  - Abdominal pain upper [Unknown]
  - Abdominal distension [Unknown]
  - Blood alkaline phosphatase increased [Unknown]
  - Asthenia [Unknown]
  - Vomiting [Unknown]
  - Abdominal pain [Unknown]
  - Blood bilirubin increased [Unknown]
  - Blood pressure increased [Unknown]
  - Dyspepsia [Unknown]
  - Vitamin D deficiency [Unknown]
  - Bacteraemia [Recovered/Resolved]
  - Decreased appetite [Unknown]
  - Blood lactic acid increased [Unknown]
  - Hypoaesthesia [Unknown]
  - Dehydration [Unknown]
  - Body temperature increased [Unknown]
  - C-reactive protein increased [Unknown]

NARRATIVE: CASE EVENT DATE: 20190703
